FAERS Safety Report 9196945 (Version 1)
Quarter: 2013Q1

REPORT INFORMATION
  Report Type: Spontaneous
  Country: US (occurrence: None)
  Receive Date: 20120709
  Receipt Date: 20120709
  Transmission Date: 20140127
  Serious: No
  Sender: FDA-Public Use
  Company Number: 2012HGS-003606

PATIENT
  Age: 62 Year
  Sex: Female
  Weight: 84.82 kg

DRUGS (5)
  1. BENLYSTA [Suspect]
     Indication: SYSTEMIC LUPUS ERYTHEMATOSUS
     Dosage: 1 IN 28 INTRAVENOUS DRIP
     Dates: start: 20120424
  2. PREDNISONE (PREDNISONE) (PREDNISONE) [Concomitant]
  3. METHOTREXATE (METHOTREXATE) (METHOTREXATE) [Concomitant]
  4. CLONAXEPAM (CLONAZEPAM) (COLNAZEPAM) [Concomitant]
  5. SULFAMAETHOXAZOLE + TRIMETHOPRIN (BACTRIM) (SULFAMETHOXAZOLE, TRIMETHOPRIM) [Concomitant]

REACTIONS (4)
  - Fatigue [None]
  - Musculoskeletal pain [None]
  - Pain in extremity [None]
  - Nausea [None]
